FAERS Safety Report 6174097-5 (Version None)
Quarter: 2009Q2

REPORT INFORMATION
  Report Type: 
  Country: None (occurrence: None)
  Receive Date: 20090430
  Receipt Date: 20090422
  Transmission Date: 20091009
  Serious: Yes (Hospitalization)
  Sender: FDA-Public Use
  Company Number: PHHY2009SE15299

PATIENT
  Sex: Female

DRUGS (5)
  1. METHERGINE [Suspect]
     Dosage: 0.125 MG, TID
  2. ZOLOFT [Concomitant]
  3. NIFEREX (POLYSACCHARIDE-IRON COMPLEX) [Concomitant]
  4. CEFAMOX [Concomitant]
  5. FLAGYL [Concomitant]

REACTIONS (9)
  - ABNORMAL BEHAVIOUR [None]
  - ASTHENIA [None]
  - COMPUTERISED TOMOGRAM ABNORMAL [None]
  - CONVULSION [None]
  - HEADACHE [None]
  - HYPOAESTHESIA [None]
  - LIPOMA [None]
  - MIGRAINE [None]
  - NUCLEAR MAGNETIC RESONANCE IMAGING ABNORMAL [None]
